FAERS Safety Report 7151962-3 (Version None)
Quarter: 2010Q4

REPORT INFORMATION
  Report Type: 
  Country: None (occurrence: None)
  Receive Date: 20101210
  Receipt Date: 20101130
  Transmission Date: 20110411
  Serious: Yes (Other)
  Sender: FDA-Public Use
  Company Number: DE-AMGEN-DEUSP2010006274

PATIENT

DRUGS (30)
  1. NPLATE [Suspect]
     Indication: IDIOPATHIC THROMBOCYTOPENIC PURPURA
     Dosage: UNK, QWK
     Route: 058
     Dates: start: 20090604
  2. NPLATE [Suspect]
     Dosage: 180 A?G, UNK
     Route: 058
     Dates: start: 20090611
  3. NPLATE [Suspect]
     Dosage: 250 A?G, UNK
     Route: 058
     Dates: start: 20090622
  4. NPLATE [Suspect]
     Dosage: 250 A?G, UNK
     Route: 058
     Dates: start: 20090629
  5. NPLATE [Suspect]
     Dosage: 250 A?G, UNK
     Route: 058
     Dates: start: 20090707
  6. NPLATE [Suspect]
     Dosage: 250 A?G, UNK
     Route: 058
     Dates: start: 20090714
  7. NPLATE [Suspect]
     Dosage: 250 A?G, UNK
     Route: 058
     Dates: start: 20090721
  8. NPLATE [Suspect]
     Dosage: 250 A?G, UNK
     Dates: start: 20090728
  9. NPLATE [Suspect]
     Dosage: 250 A?G, UNK
     Route: 058
     Dates: start: 20090804
  10. NPLATE [Suspect]
     Dosage: 250 A?G, UNK
     Route: 058
     Dates: start: 20090901
  11. NPLATE [Suspect]
     Dosage: 250 A?G, UNK
     Route: 058
     Dates: start: 20090928
  12. NPLATE [Suspect]
     Dosage: 250 A?G, UNK
     Route: 058
     Dates: start: 20091020
  13. NPLATE [Suspect]
     Dosage: 250 A?G, UNK
     Route: 058
     Dates: start: 20091124
  14. NPLATE [Suspect]
     Dosage: 250 A?G, UNK
     Route: 058
     Dates: start: 20100105
  15. NPLATE [Suspect]
     Dosage: 250 MG, UNK
     Route: 058
     Dates: start: 20100202
  16. NPLATE [Suspect]
     Dosage: 250 A?G, UNK
     Route: 058
     Dates: start: 20100302
  17. NPLATE [Suspect]
     Dosage: 250 A?G, UNK
     Dates: start: 20100330
  18. SANDIMMUNE [Concomitant]
     Indication: PRODUCT USED FOR UNKNOWN INDICATION
     Dosage: 160 MG, UNK
     Dates: start: 20061223
  19. COTRIM [Concomitant]
     Indication: PRODUCT USED FOR UNKNOWN INDICATION
     Dosage: 960 MG, 3 TIMES/WK
  20. IBUPROFEN [Concomitant]
     Indication: PRODUCT USED FOR UNKNOWN INDICATION
     Dosage: 400 UNK, UNK
  21. HCT [Concomitant]
     Indication: PRODUCT USED FOR UNKNOWN INDICATION
     Dosage: 25 MG, UNK
  22. BISOPROLOL [Concomitant]
     Indication: PRODUCT USED FOR UNKNOWN INDICATION
     Dosage: UNK
  23. AQUAPHOR                           /00298701/ [Concomitant]
     Indication: PRODUCT USED FOR UNKNOWN INDICATION
  24. NEXIUM [Concomitant]
     Indication: PRODUCT USED FOR UNKNOWN INDICATION
  25. ELTROMBOPAG [Concomitant]
     Indication: PRODUCT USED FOR UNKNOWN INDICATION
  26. PNEUMOVAX VACCIN [Concomitant]
     Indication: IMMUNISATION
     Dosage: UNK
     Route: 058
     Dates: start: 20090611
  27. VOTUM                              /01635402/ [Concomitant]
     Indication: PRODUCT USED FOR UNKNOWN INDICATION
     Dosage: UNK MG, UNK
  28. FELODIPINE [Concomitant]
     Indication: PRODUCT USED FOR UNKNOWN INDICATION
  29. ZYLORIC                            /00003301/ [Concomitant]
     Indication: PRODUCT USED FOR UNKNOWN INDICATION
     Dosage: 300 MG, UNK
  30. VALTREX [Concomitant]
     Indication: PRODUCT USED FOR UNKNOWN INDICATION
     Dosage: 500 MG, UNK

REACTIONS (7)
  - ANAPHYLACTIC REACTION [None]
  - CHILLS [None]
  - FIBROSIS [None]
  - HYPERSENSITIVITY [None]
  - MYELODYSPLASTIC SYNDROME [None]
  - PYREXIA [None]
  - THERAPEUTIC RESPONSE DECREASED [None]
